FAERS Safety Report 12347286 (Version 3)
Quarter: 2016Q2

REPORT INFORMATION
  Report Type: Spontaneous
  Country: PT (occurrence: PT)
  Receive Date: 20160509
  Receipt Date: 20160524
  Transmission Date: 20160815
  Serious: Yes (Other)
  Sender: FDA-Public Use
  Company Number: PT-PFIZER INC-2016243385

PATIENT
  Age: 83 Year
  Sex: Female
  Weight: 68 kg

DRUGS (3)
  1. CELEBREX [Suspect]
     Active Substance: CELECOXIB
     Indication: BACK PAIN
     Dosage: 200 MG
     Route: 048
     Dates: start: 2016
  2. DAFLON [Concomitant]
     Active Substance: DIOSMIN\HESPERIDIN
     Indication: PERIPHERAL VASCULAR DISORDER
     Dosage: 1 DF, 2X/DAY
     Route: 048
  3. CELEBREX [Suspect]
     Active Substance: CELECOXIB
     Dosage: 200 MG, AS NEEDED
     Route: 048
     Dates: end: 2016

REACTIONS (3)
  - Vulvovaginal rash [Recovered/Resolved]
  - Vulval haemorrhage [Recovered/Resolved]
  - Vulval disorder [Recovered/Resolved]

NARRATIVE: CASE EVENT DATE: 2016
